FAERS Safety Report 9797645 (Version 2)
Quarter: 2014Q1

REPORT INFORMATION
  Report Type: Spontaneous
  Country: US (occurrence: US)
  Receive Date: 20140106
  Receipt Date: 20140127
  Transmission Date: 20141002
  Serious: No
  Sender: FDA-Public Use
  Company Number: US-PFIZER INC-2014001174

PATIENT
  Age: 56 Year
  Sex: Male
  Weight: 86.17 kg

DRUGS (3)
  1. LYRICA [Suspect]
     Indication: NEUROPATHY PERIPHERAL
     Dosage: 150 MG, 2X/DAY
     Dates: start: 2013
  2. METFORMIN [Concomitant]
     Indication: DIABETES MELLITUS
     Dosage: 750 MG, DAILY
  3. GLIMEPIRIDE [Concomitant]
     Indication: DIABETES MELLITUS
     Dosage: 1 MG, DAILY

REACTIONS (3)
  - Pain [Unknown]
  - Feeling hot [Unknown]
  - Pain in extremity [Unknown]
